FAERS Safety Report 22089337 (Version 1)
Quarter: 2023Q1

REPORT INFORMATION
  Report Type: Spontaneous
  Country: US (occurrence: None)
  Receive Date: 20230309
  Receipt Date: 20230309
  Transmission Date: 20230418
  Serious: Yes (Other)
  Sender: FDA-Public Use
  Company Number: None

PATIENT
  Sex: Male

DRUGS (3)
  1. CAPECITABINE [Suspect]
     Active Substance: CAPECITABINE
     Dosage: 1450MG BID ORAL?
     Route: 048
  2. CARVEDILOL [Suspect]
     Active Substance: CARVEDILOL
  3. OMEPRAZOLE [Suspect]
     Active Substance: OMEPRAZOLE

REACTIONS (4)
  - Chest pain [None]
  - Bradycardia [None]
  - Drug interaction [None]
  - Therapy cessation [None]
